FAERS Safety Report 6685183-5 (Version None)
Quarter: 2010Q2

REPORT INFORMATION
  Report Type: 
  Country: None (occurrence: None)
  Receive Date: 20100416
  Receipt Date: 20100407
  Transmission Date: 20101027
  Serious: Yes (Other)
  Sender: FDA-Public Use
  Company Number: IT-ELI_LILLY_AND_COMPANY-IT201004001570

PATIENT
  Age: 60 Year
  Sex: Female

DRUGS (3)
  1. ALIMTA [Suspect]
     Dosage: 500 MG/M2, UNKNOWN
     Route: 065
     Dates: start: 20100101
  2. VITAMIN B-12 [Concomitant]
     Dosage: UNK, UNKNOWN
     Route: 065
  3. FOLIC ACID [Concomitant]
     Dosage: UNK, UNKNOWN
     Route: 065

REACTIONS (6)
  - CONJUNCTIVITIS [None]
  - HAEMORRHAGE [None]
  - LACRIMATION INCREASED [None]
  - NASAL CONGESTION [None]
  - NASAL TURBINATE HYPERTROPHY [None]
  - PHOTOPHOBIA [None]
